FAERS Safety Report 6371739-6 (Version None)
Quarter: 2009Q3

REPORT INFORMATION
  Report Type: 
  Country: None (occurrence: None)
  Receive Date: 20090918
  Receipt Date: 20090902
  Transmission Date: 20100115
  Serious: Yes (Other)
  Sender: FDA-Public Use
  Company Number: 8051882

PATIENT
  Age: 45 Year
  Sex: Female

DRUGS (6)
  1. PREDNISOLONE [Suspect]
  2. CYCLOSPORINE [Suspect]
  3. MYCOPHENOLATE MOFETIL [Suspect]
  4. ALEMTUZUMAB [Concomitant]
  5. FLUDARABINE [Concomitant]
  6. MELPHALAN [Concomitant]

REACTIONS (5)
  - ACUTE GRAFT VERSUS HOST DISEASE IN SKIN [None]
  - EYE DISORDER [None]
  - GASTROENTERITIS NOROVIRUS [None]
  - GRAFT VERSUS HOST DISEASE [None]
  - GRAFT VERSUS HOST DISEASE IN LUNG [None]
